FAERS Safety Report 8274562-0 (Version None)
Quarter: 2012Q2

REPORT INFORMATION
  Report Type: 
  Country: None (occurrence: None)
  Receive Date: 20120411
  Receipt Date: 20120330
  Transmission Date: 20120825
  Serious: Yes (Hospitalization)
  Sender: FDA-Public Use
  Company Number: US-BAYER-2011-080239

PATIENT
  Age: 32 Year
  Sex: Female
  Weight: 134.24 kg

DRUGS (1)
  1. YASMIN [Suspect]

REACTIONS (2)
  - DEEP VEIN THROMBOSIS [None]
  - PAIN [None]
